FAERS Safety Report 24061951 (Version 1)
Quarter: 2024Q3

REPORT INFORMATION
  Report Type: Spontaneous
  Country: FR (occurrence: FR)
  Receive Date: 20240708
  Receipt Date: 20240708
  Transmission Date: 20241017
  Serious: Yes (Hospitalization)
  Sender: MYLAN
  Company Number: FR-ROCHE-10000001710

PATIENT
  Age: 73 Year
  Sex: Female
  Weight: 87 kg

DRUGS (37)
  1. PREDNISONE [Suspect]
     Active Substance: PREDNISONE
     Indication: B-cell lymphoma
     Dosage: 100 MILLIGRAM, Q3W
     Route: 048
     Dates: start: 20240214
  2. PREDNISONE [Suspect]
     Active Substance: PREDNISONE
     Dosage: 100 MILLIGRAM
     Route: 048
     Dates: start: 20240529
  3. PREDNISONE [Suspect]
     Active Substance: PREDNISONE
     Dosage: 100 MILLIGRAM
     Route: 048
     Dates: start: 20240602
  4. POLIVY [Suspect]
     Active Substance: POLATUZUMAB VEDOTIN-PIIQ
     Indication: B-cell lymphoma
     Dosage: 162 MILLIGRAM, Q3W, ON 29/MAY/2024, MOST RECENT DOSE (144 MG) PRIOR TO AE/SAE WAS TAKEN.
     Route: 042
     Dates: start: 20240214
  5. POLIVY [Suspect]
     Active Substance: POLATUZUMAB VEDOTIN-PIIQ
     Dosage: 144 MILLIGRAM
     Route: 042
     Dates: start: 20240529
  6. DOXORUBICIN [Suspect]
     Active Substance: DOXORUBICIN
     Indication: B-cell lymphoma
     Dosage: 96 MILLIGRAM, Q3W, ON 29/MAY/2024, MOST RECENT DOSE (91 MG) PRIOR TO AE/SAE WAS TAKEN.
     Route: 042
     Dates: start: 20240214
  7. DOXORUBICIN [Suspect]
     Active Substance: DOXORUBICIN
     Dosage: 91 MILLIGRAM
     Route: 042
     Dates: start: 20240529
  8. CYCLOPHOSPHAMIDE [Suspect]
     Active Substance: CYCLOPHOSPHAMIDE
     Indication: B-cell lymphoma
     Dosage: 1440 MILLIGRAM, Q3W, ON 29/MAY/2024, MOST RECENT DOSE (1366 MG) WAS TAKEN.
     Route: 042
     Dates: start: 20240214
  9. CYCLOPHOSPHAMIDE [Suspect]
     Active Substance: CYCLOPHOSPHAMIDE
     Dosage: 1366 MILLIGRAM
     Route: 042
     Dates: start: 20240529
  10. MABTHERA [Suspect]
     Active Substance: RITUXIMAB
     Indication: B-cell lymphoma
     Dosage: 720 MILLIGRAM, Q3W, ON 29/MAY/2024, MOST RECENT DOSE (683 MG) PRIOR TO AE/SAE WAS TAKEN.
     Route: 042
     Dates: start: 20240214
  11. MABTHERA [Suspect]
     Active Substance: RITUXIMAB
     Dosage: 683 MILLIGRAM
     Route: 042
     Dates: start: 20240529
  12. ACETAMINOPHEN [Concomitant]
     Active Substance: ACETAMINOPHEN
     Dosage: 1 GRAM, QD
     Route: 048
  13. ACETAMINOPHEN [Concomitant]
     Active Substance: ACETAMINOPHEN
     Dosage: 1 GRAM, QD
     Route: 048
     Dates: start: 20240507, end: 20240507
  14. INDAPAMIDE [Concomitant]
     Active Substance: INDAPAMIDE
     Indication: Hypertension
     Dosage: 1.5 MILLIGRAM, QD
     Route: 048
  15. APREPITANT [Concomitant]
     Active Substance: APREPITANT
     Dosage: 125 MILLIGRAM, QD, GIVEN FOR PROPHYLAXIS IS YES
     Route: 048
     Dates: start: 20240529, end: 20240529
  16. APREPITANT [Concomitant]
     Active Substance: APREPITANT
     Dosage: UNK, PRN, GIVEN FOR PROPHYLAXIS IS YES
     Route: 048
  17. BISOPROLOL FUMARATE [Concomitant]
     Active Substance: BISOPROLOL FUMARATE
     Indication: Atrial fibrillation
     Dosage: 5 MILLIGRAM, QD
     Route: 048
  18. FILGRASTIM [Concomitant]
     Active Substance: FILGRASTIM
     Dosage: UNK
     Route: 058
     Dates: start: 20240612
  19. LENOGRASTIM [Concomitant]
     Active Substance: LENOGRASTIM
     Dosage: 34000 INTERNATIONAL UNIT, QD, GIVEN FOR PROPHYLAXIS IS YES
     Route: 058
  20. FUROSEMIDE [Concomitant]
     Active Substance: FUROSEMIDE
     Indication: Hypertension
     Dosage: 20 MILLIGRAM, QD
     Route: 048
     Dates: start: 20240327
  21. ESOMEPRAZOLE [Concomitant]
     Active Substance: ESOMEPRAZOLE
     Indication: Gastrooesophageal reflux disease
     Dosage: 40 MILLIGRAM, QD
     Route: 048
  22. PLATELETS [Concomitant]
     Active Substance: HUMAN PLATELET, ALLOGENIC
     Dosage: 800 MILLILITER, QD
     Route: 042
     Dates: start: 20240611, end: 20240611
  23. RACECADOTRIL [Concomitant]
     Active Substance: RACECADOTRIL
     Dosage: UNK, GIVEN FOR PROPHYLAXIS IS YES
     Route: 048
     Dates: start: 20240306
  24. ONDANSETRON [Concomitant]
     Active Substance: ONDANSETRON
     Dosage: UNK, PRN, GASTROOESOPHAGEAL REFLUX
     Route: 048
  25. ONDANSETRON [Concomitant]
     Active Substance: ONDANSETRON
     Dosage: 8 MILLIGRAM, QD, GIVEN FOR PROPHYLAXIS IS YES
     Route: 065
  26. VALACYCLOVIR HYDROCHLORIDE [Concomitant]
     Active Substance: VALACYCLOVIR HYDROCHLORIDE
     Dosage: 500 MILLIGRAM, BID GIVEN FOR PROPHYLAXIS IS YES
     Route: 048
  27. CHOLECALCIFEROL [Concomitant]
     Active Substance: CHOLECALCIFEROL
     Dosage: 100000 INTERNATIONAL UNIT, GIVEN FOR PROPHYLAXIS IS YES
     Route: 048
  28. DEXCHLORPHENIRAMINE [Concomitant]
     Active Substance: DEXCHLORPHENIRAMINE
     Dosage: 5 MILLIGRAM, QD
     Route: 042
     Dates: start: 20240507, end: 20240507
  29. DEXCHLORPHENIRAMINE [Concomitant]
     Active Substance: DEXCHLORPHENIRAMINE
     Dosage: 5 MILLIGRAM, QD
     Route: 042
     Dates: start: 20240529, end: 20240529
  30. ERYTHROPOIETIN [Concomitant]
     Active Substance: ERYTHROPOIETIN
     Indication: Anaemia
     Dosage: UNK
     Route: 042
  31. MESNA [Concomitant]
     Active Substance: MESNA
     Dosage: 477.25 MILLIGRAM, QD, GIVEN FOR PROPHYLAXIS IS YES
     Route: 042
     Dates: start: 20240507, end: 20240507
  32. MESNA [Concomitant]
     Active Substance: MESNA
     Dosage: 477.25 MILLIGRAM, QD, GIVEN FOR PROPHYLAXIS IS YES
     Route: 042
     Dates: start: 20240529, end: 20240529
  33. MESNA [Concomitant]
     Active Substance: MESNA
     Dosage: 954.5 MILLIGRAM, BID, GIVEN FOR PROPHYLAXIS IS YES
     Route: 048
     Dates: start: 20240507, end: 20240507
  34. MESNA [Concomitant]
     Active Substance: MESNA
     Dosage: 954.5 MILLIGRAM, BID, GIVEN FOR PROPHYLAXIS IS YES
     Route: 048
     Dates: start: 20240529, end: 20240529
  35. MONTMORILLONITE [Concomitant]
     Active Substance: MONTMORILLONITE
     Dosage: UNK, PRN, GIVEN FOR PROPHYLAXIS IS YES
     Route: 048
     Dates: start: 20240306
  36. TINZAPARIN SODIUM [Concomitant]
     Active Substance: TINZAPARIN SODIUM
     Dosage: 14000 INTERNATIONAL UNIT, QD
     Route: 058
     Dates: start: 20240417
  37. SULFAMETHOXAZOLE\TRIMETHOPRIM [Concomitant]
     Active Substance: SULFAMETHOXAZOLE\TRIMETHOPRIM
     Dosage: 960 MILLIGRAM, 0.33 WEEK, GIVEN FOR PROPHYLAXIS IS YES
     Route: 048
     Dates: start: 20240214

REACTIONS (2)
  - Thrombocytopenia [Not Recovered/Not Resolved]
  - Anaemia [Not Recovered/Not Resolved]

NARRATIVE: CASE EVENT DATE: 20240306
